FAERS Safety Report 10763523 (Version 4)
Quarter: 2015Q2

REPORT INFORMATION
  Report Type: Spontaneous
  Country: US (occurrence: US)
  Receive Date: 20150204
  Receipt Date: 20150407
  Transmission Date: 20150821
  Serious: Yes (Hospitalization, Other)
  Sender: FDA-Public Use
  Company Number: US-PFIZER INC-2015026298

PATIENT
  Age: 62 Year
  Sex: Male
  Weight: 111 kg

DRUGS (14)
  1. NYSTOP [Concomitant]
     Active Substance: NYSTATIN
     Dosage: 2-3 TIMES A DAY- NEEDS LARGER BOTTLE THEN 15 GRAMS
  2. TRAMADOL HYDROCHLORIDE. [Concomitant]
     Active Substance: TRAMADOL HYDROCHLORIDE
     Indication: PAIN
     Dosage: 50 MG 4X/DAY, AS NEEDED
     Route: 048
  3. DIAZEPAM. [Concomitant]
     Active Substance: DIAZEPAM
     Dosage: 5 MG, 2X/DAY (1 TAB BID PM)
  4. MUCINEX [Concomitant]
     Active Substance: GUAIFENESIN
     Dosage: 600 MG, 2X/DAY
  5. NYSTATIN. [Concomitant]
     Active Substance: NYSTATIN
     Dosage: 5 ML (100000 UNIT/ML), 3X/DAY
     Route: 048
  6. LYRICA [Suspect]
     Active Substance: PREGABALIN
     Indication: NEURALGIA
     Dosage: 150 MG, 3X/DAY
     Dates: start: 2013
  7. POTASSIUM CHLORIDE ER [Concomitant]
     Active Substance: POTASSIUM CHLORIDE
     Dosage: 10 MEQ, 1X/DAY
  8. OMEPRAZOLE. [Concomitant]
     Active Substance: OMEPRAZOLE
     Dosage: 40 MG, 1X/DAY (1 EVERY MORNING)
  9. VITAMIN D3 [Concomitant]
     Active Substance: CHOLECALCIFEROL
     Dosage: 1000 IU, 1X/DAY
  10. FLORASTOR [Concomitant]
     Active Substance: SACCHAROMYCES CEREVISIAE
     Indication: PROBIOTIC THERAPY
     Dosage: 250 MG, 2X/DAY
  11. MAGNESIUM [Concomitant]
     Active Substance: MAGNESIUM
     Dosage: 250 MG, 1X/DAY
  12. SERTRALINE HYDROCHLORIDE. [Concomitant]
     Active Substance: SERTRALINE HYDROCHLORIDE
     Dosage: 100 MG, 1X/DAY
  13. VITAMIN C [Concomitant]
     Active Substance: ASCORBIC ACID
     Dosage: 1000 MG, 1X/DAY
  14. VITAMIN B12 [Concomitant]
     Active Substance: CYANOCOBALAMIN
     Dosage: 1000 ?G, 1X/DAY

REACTIONS (38)
  - Headache [Unknown]
  - Bronchitis [Unknown]
  - Muscle contracture [Unknown]
  - Fistula [Unknown]
  - Impaired fasting glucose [Unknown]
  - Myalgia [Unknown]
  - Bladder disorder [Unknown]
  - Sepsis [Unknown]
  - Dry mouth [Unknown]
  - Neurogenic bladder [Unknown]
  - Abdominal hernia [Unknown]
  - Ileus [Unknown]
  - Visual impairment [Unknown]
  - Asthma [Unknown]
  - Cough [Unknown]
  - Wheezing [Unknown]
  - Sleep apnoea syndrome [Unknown]
  - Hydronephrosis [Unknown]
  - Obesity [Unknown]
  - Mouth ulceration [Unknown]
  - Contusion [Unknown]
  - Hypertriglyceridaemia [Unknown]
  - Deafness [Unknown]
  - Asthenia [Unknown]
  - Urinary tract infection [Unknown]
  - Prostate cancer [Unknown]
  - Bronchospasm [Unknown]
  - Influenza [Unknown]
  - Muscle spasms [Unknown]
  - Post procedural infection [Unknown]
  - Anxiety [Unknown]
  - Cystitis interstitial [Unknown]
  - Musculoskeletal discomfort [Unknown]
  - Sexual dysfunction [Unknown]
  - Benign prostatic hyperplasia [Unknown]
  - Pain [Unknown]
  - Back pain [Unknown]
  - Myositis [Unknown]

NARRATIVE: CASE EVENT DATE: 201403
